FAERS Safety Report 20976956 (Version 2)
Quarter: 2022Q2

REPORT INFORMATION
  Report Type: Report from Study
  Country: US (occurrence: US)
  Receive Date: 20220617
  Receipt Date: 20220629
  Transmission Date: 20220721
  Serious: Yes (Hospitalization)
  Sender: FDA-Public Use
  Company Number: US-AMGEN-USASL2022102035

PATIENT
  Sex: Female

DRUGS (1)
  1. NEULASTA [Suspect]
     Active Substance: PEGFILGRASTIM
     Indication: Product used for unknown indication
     Dosage: UNK
     Route: 065
     Dates: start: 20220610

REACTIONS (7)
  - Visual impairment [Unknown]
  - Dizziness [Unknown]
  - Dyspnoea [Unknown]
  - Cardiac disorder [Recovered/Resolved]
  - Blood glucose increased [Unknown]
  - COVID-19 [Unknown]
  - Device leakage [Unknown]

NARRATIVE: CASE EVENT DATE: 20220601
